FAERS Safety Report 8259587-3 (Version None)
Quarter: 2012Q2

REPORT INFORMATION
  Report Type: 
  Country: None (occurrence: None)
  Receive Date: 20120404
  Receipt Date: 20120327
  Transmission Date: 20120825
  Serious: Yes (Other)
  Sender: FDA-Public Use
  Company Number: PHFR2012GB001951

PATIENT
  Sex: Male

DRUGS (1)
  1. CLOZARIL [Suspect]
     Indication: SCHIZOPHRENIA
     Dosage: 450 MG, DAILY
     Route: 048
     Dates: start: 20110302

REACTIONS (5)
  - DELUSION [None]
  - HEAD DISCOMFORT [None]
  - DYSKINESIA [None]
  - HUNTINGTON'S DISEASE [None]
  - GAIT DISTURBANCE [None]
